FAERS Safety Report 8787493 (Version 1)
Quarter: 2012Q4

REPORT INFORMATION
  Report Type: Report from Study
  Country: US (occurrence: US)
  Receive Date: 20120914
  Receipt Date: 20120914
  Transmission Date: 20130627
  Serious: No
  Sender: FDA-Public Use
  Company Number: US-VERTEX PHARMACEUTICAL INC.-AE-2012-008516

PATIENT

DRUGS (5)
  1. INCIVEK [Suspect]
     Indication: HEPATITIS C
     Route: 048
     Dates: start: 20120320
  2. PEGASYS [Concomitant]
     Indication: HEPATITIS C
     Route: 058
     Dates: start: 20120320
  3. RIBASPHERE [Concomitant]
     Indication: HEPATITIS C
     Dates: start: 20120320
  4. LOSARTAN-HCTZ [Concomitant]
  5. OMEPRAZOLE DR [Concomitant]

REACTIONS (8)
  - Skin ulcer [Unknown]
  - Dry skin [Unknown]
  - Insomnia [Unknown]
  - Skin irritation [Unknown]
  - Fatigue [Unknown]
  - Rash papular [Unknown]
  - Anal pruritus [Unknown]
  - Anorectal discomfort [Unknown]
